FAERS Safety Report 15758812 (Version 1)
Quarter: 2018Q4

REPORT INFORMATION
  Report Type: Spontaneous
  Country: GB (occurrence: GB)
  Receive Date: 20181225
  Receipt Date: 20181225
  Transmission Date: 20190205
  Serious: Yes (Life-Threatening, Hospitalization, Other)
  Sender: FDA-Public Use
  Company Number: GB-BRISTOL-MYERS SQUIBB COMPANY-BMS-2018-117137

PATIENT
  Sex: Male

DRUGS (1)
  1. EFAVIRENZ. [Suspect]
     Active Substance: EFAVIRENZ
     Indication: HIV INFECTION
     Dosage: 600 MG, UNK
     Route: 048

REACTIONS (5)
  - Wrong technique in product usage process [Unknown]
  - Dysphagia [Unknown]
  - Pneumonia aspiration [Unknown]
  - Diabetic ketoacidosis [Unknown]
  - Malaise [Unknown]
